FAERS Safety Report 19315585 (Version 1)
Quarter: 2021Q2

REPORT INFORMATION
  Report Type: Spontaneous
  Country: US (occurrence: US)
  Receive Date: 20210527
  Receipt Date: 20210527
  Transmission Date: 20210717
  Serious: No
  Sender: FDA-Public Use
  Company Number: US-PROGENICS PHARMACEUTICALS/LANTHEUS HOLDINGS-LMI-2021-00105

PATIENT
  Age: 71 Year
  Sex: Female

DRUGS (1)
  1. AZEDRA [Suspect]
     Active Substance: IOBENGUANE I-131
     Indication: PRODUCT USED FOR UNKNOWN INDICATION
     Dosage: 5.5 MCI (DOSIMETRY DOSE)
     Route: 065
     Dates: start: 20210126, end: 20210126

REACTIONS (1)
  - Disease progression [Unknown]
